FAERS Safety Report 9528087 (Version 1)
Quarter: 2013Q3

REPORT INFORMATION
  Report Type: Spontaneous
  Country: US (occurrence: US)
  Receive Date: 20130917
  Receipt Date: 20130917
  Transmission Date: 20140515
  Serious: Yes (Other)
  Sender: FDA-Public Use
  Company Number: US-RANBAXY-2013US-73169

PATIENT
  Age: 94 Year
  Sex: Female

DRUGS (2)
  1. WESTCORT [Suspect]
     Indication: DRY SKIN
     Dosage: UNK
     Route: 061
  2. WESTCORT [Suspect]
     Indication: PRURITUS

REACTIONS (3)
  - Migraine [Recovered/Resolved]
  - Headache [Recovered/Resolved]
  - Photopsia [Recovered/Resolved]
